FAERS Safety Report 7718794-6 (Version None)
Quarter: 2011Q3

REPORT INFORMATION
  Report Type: 
  Country: None (occurrence: None)
  Receive Date: 20110830
  Receipt Date: 20110825
  Transmission Date: 20111222
  Serious: Yes (Other)
  Sender: FDA-Public Use
  Company Number: US-PFIZER INC-2011197888

PATIENT
  Sex: Male

DRUGS (2)
  1. NEURONTIN [Suspect]
     Dosage: UNK
  2. TOPAMAX [Suspect]
     Dosage: UNK

REACTIONS (6)
  - CONFUSIONAL STATE [None]
  - IMPAIRED DRIVING ABILITY [None]
  - VISION BLURRED [None]
  - ACTIVITIES OF DAILY LIVING IMPAIRED [None]
  - THINKING ABNORMAL [None]
  - DRUG EFFECT DECREASED [None]
